FAERS Safety Report 11414601 (Version 1)
Quarter: 2015Q3

REPORT INFORMATION
  Report Type: Spontaneous
  Country: US (occurrence: None)
  Receive Date: 20150821
  Receipt Date: 20150821
  Transmission Date: 20151125
  Serious: Yes (Other)
  Sender: FDA-Public Use
  Company Number: ADR-2015-01583

PATIENT
  Age: 56 Year
  Sex: Male

DRUGS (2)
  1. BUPIVACAINE INTRATHECAL [Suspect]
     Active Substance: BUPIVACAINE
     Indication: SPINAL PAIN
     Dosage: 5.007 MG/DAY
  2. BACLOFEN INTRATHECAL [Suspect]
     Active Substance: BACLOFEN
     Indication: SPINAL PAIN
     Dosage: 0.10014 MG/DAY

REACTIONS (4)
  - Pain [None]
  - Fall [None]
  - Hypoaesthesia [None]
  - Road traffic accident [None]

NARRATIVE: CASE EVENT DATE: 20150601
